FAERS Safety Report 9127903 (Version 1)
Quarter: 2013Q1

REPORT INFORMATION
  Report Type: Spontaneous
  Country: US (occurrence: US)
  Receive Date: 20130228
  Receipt Date: 20130228
  Transmission Date: 20140127
  Serious: No
  Sender: FDA-Public Use
  Company Number: US-BRISTOL-MYERS SQUIBB COMPANY-17332958

PATIENT
  Age: 64 Year
  Sex: Female

DRUGS (2)
  1. KOMBIGLYZE XR [Suspect]
     Dosage: 1DF:2.5/1000 MG?STARTED 2 WEEKS BEFORE
  2. SIMVASTATIN [Concomitant]

REACTIONS (2)
  - Blood glucose increased [Unknown]
  - Urinary tract infection [Not Recovered/Not Resolved]
